FAERS Safety Report 9682717 (Version 1)
Quarter: 2013Q4

REPORT INFORMATION
  Report Type: Spontaneous
  Country: GB (occurrence: GB)
  Receive Date: 20131029
  Receipt Date: 20131029
  Transmission Date: 20140711
  Serious: Yes (Other)
  Sender: FDA-Public Use
  Company Number: GB-DRREDDYS-GER/UKI/13/0035080

PATIENT
  Age: 65 Year
  Sex: Female
  Weight: 56.24 kg

DRUGS (6)
  1. ATORVASTATIN [Suspect]
     Indication: HYPERCHOLESTEROLAEMIA
     Route: 048
     Dates: start: 20130709, end: 20130919
  2. AMLODIPINE [Concomitant]
     Indication: HYPERTENSION
  3. GABAPENTIN [Concomitant]
     Indication: NEURALGIA
     Dates: end: 201308
  4. PARACETAMOL [Concomitant]
     Indication: NEURALGIA
  5. TRAMADOL [Concomitant]
     Indication: NEURALGIA
  6. ZOPICLONE [Concomitant]
     Indication: PRODUCT USED FOR UNKNOWN INDICATION

REACTIONS (6)
  - Neuralgia [Recovering/Resolving]
  - Bone pain [Recovering/Resolving]
  - Amnesia [Recovering/Resolving]
  - Myalgia [Recovering/Resolving]
  - Pain [Unknown]
  - Fatigue [Recovering/Resolving]
